FAERS Safety Report 26042983 (Version 1)
Quarter: 2025Q4

REPORT INFORMATION
  Report Type: Spontaneous
  Country: US (occurrence: US)
  Receive Date: 20251113
  Receipt Date: 20251113
  Transmission Date: 20260117
  Serious: No
  Sender: ANI
  Company Number: US-ANIPHARMA-2025-US-045639

PATIENT
  Sex: Female

DRUGS (1)
  1. CORTICOTROPIN [Suspect]
     Active Substance: CORTICOTROPIN
     Indication: Systemic lupus erythematosus
     Dosage: 80 UNITS TWICE A WEEK
     Dates: start: 20250731, end: 20250923

REACTIONS (4)
  - Injection site urticaria [Unknown]
  - Injection site vesicles [Unknown]
  - Injection site erythema [Unknown]
  - Injection site discharge [Unknown]
